FAERS Safety Report 9307367 (Version 4)
Quarter: 2013Q4

REPORT INFORMATION
  Report Type: Spontaneous
  Country: US (occurrence: US)
  Receive Date: 20130524
  Receipt Date: 20131016
  Transmission Date: 20140711
  Serious: No
  Sender: FDA-Public Use
  Company Number: US-BIOGENIDEC-2013BI046391

PATIENT
  Age: 64 Year
  Sex: Female

DRUGS (2)
  1. TYSABRI [Suspect]
     Indication: MULTIPLE SCLEROSIS
     Route: 042
     Dates: start: 20130514
  2. AVONEX [Concomitant]
     Indication: MULTIPLE SCLEROSIS
     Route: 030

REACTIONS (19)
  - Depression [Unknown]
  - Haemoptysis [Recovered/Resolved]
  - Hepatic lesion [Not Recovered/Not Resolved]
  - Polyarthritis [Not Recovered/Not Resolved]
  - Anosmia [Not Recovered/Not Resolved]
  - Dysphonia [Recovered/Resolved]
  - Anxiety [Not Recovered/Not Resolved]
  - Vein disorder [Not Recovered/Not Resolved]
  - Stress [Recovered/Resolved]
  - Dysgeusia [Not Recovered/Not Resolved]
  - Muscular weakness [Not Recovered/Not Resolved]
  - Dry eye [Not Recovered/Not Resolved]
  - Eye haemorrhage [Unknown]
  - Eye pain [Recovered/Resolved]
  - Insomnia [Recovered/Resolved]
  - Varicose vein [Not Recovered/Not Resolved]
  - Constipation [Recovered/Resolved]
  - Dizziness [Not Recovered/Not Resolved]
  - Fatigue [Not Recovered/Not Resolved]
